FAERS Safety Report 17229752 (Version 3)
Quarter: 2020Q1

REPORT INFORMATION
  Report Type: Report from Study
  Country: US (occurrence: US)
  Receive Date: 20200103
  Receipt Date: 20200124
  Transmission Date: 20200409
  Serious: Yes (Hospitalization)
  Sender: FDA-Public Use
  Company Number: NVSC2019US082052

PATIENT
  Age: 76 Year
  Sex: Female
  Weight: 46 kg

DRUGS (25)
  1. LIPITOR [Concomitant]
     Active Substance: ATORVASTATIN CALCIUM
     Indication: OSTEOPENIA
     Dosage: 40 MG, QD
     Route: 048
     Dates: start: 201310
  2. GLUCOPHAGE [Concomitant]
     Active Substance: METFORMIN HYDROCHLORIDE
     Indication: DIABETES MELLITUS
     Dosage: 850 MG, TID
     Route: 048
     Dates: start: 2014
  3. MARIJUANA [Concomitant]
     Active Substance: CANNABIS SATIVA SUBSP. INDICA TOP
     Indication: BACK PAIN
     Dosage: 1 ML, BID, PRN
     Route: 048
     Dates: start: 20190603
  4. LISINOPRIL. [Concomitant]
     Active Substance: LISINOPRIL
     Indication: HYPERTENSION
     Dosage: 10 MG, QD
     Route: 048
     Dates: start: 2014
  5. REMERON [Concomitant]
     Active Substance: MIRTAZAPINE
     Indication: SLEEP DISORDER
     Dosage: 15 MG, BEDTIME
     Route: 048
     Dates: start: 20190523
  6. REMERON [Concomitant]
     Active Substance: MIRTAZAPINE
     Indication: APPETITE DISORDER
  7. OXYCODONE [Concomitant]
     Active Substance: OXYCODONE
     Indication: BACK PAIN
     Dosage: 10 MG, PRN
     Route: 048
     Dates: start: 2012
  8. ATARAX [Concomitant]
     Active Substance: HYDROXYZINE HYDROCHLORIDE
     Indication: URTICARIA
     Dosage: 1 DF, TID
     Route: 048
     Dates: start: 20190729
  9. KISQALI [Suspect]
     Active Substance: RIBOCICLIB
     Indication: OVARIAN CANCER
     Dosage: UNK
     Route: 048
     Dates: start: 20191118, end: 20191222
  10. METOPROLOL SUCCINATE. [Concomitant]
     Active Substance: METOPROLOL SUCCINATE
     Indication: HYPERTENSION
     Dosage: 25 MG, QD
     Route: 048
     Dates: start: 2017
  11. XIFAXAN [Concomitant]
     Active Substance: RIFAXIMIN
     Indication: IRRITABLE BOWEL SYNDROME
     Dosage: 550 MG, QD
     Route: 048
     Dates: start: 20181221
  12. KEFLEX [Concomitant]
     Active Substance: CEPHALEXIN
     Indication: COUGH
     Dosage: 1 CAPSULE, Q8H X 10 DAYS
     Route: 048
     Dates: start: 20190904
  13. TRAZODONE [Concomitant]
     Active Substance: TRAZODONE HYDROCHLORIDE
     Indication: DEPRESSION
     Dosage: 50 MG, QHS
     Route: 048
     Dates: start: 2018
  14. RITALIN [Concomitant]
     Active Substance: METHYLPHENIDATE HYDROCHLORIDE
     Indication: SUPPLEMENTATION THERAPY
     Dosage: 5 MG, BID
     Route: 065
     Dates: start: 20190523
  15. ZANTAC [Concomitant]
     Active Substance: RANITIDINE HYDROCHLORIDE
     Indication: GASTROOESOPHAGEAL REFLUX DISEASE
     Dosage: 150 MG, QD
     Route: 048
     Dates: start: 201812
  16. SYMBICORT [Concomitant]
     Active Substance: BUDESONIDE\FORMOTEROL FUMARATE DIHYDRATE
     Indication: DYSPNOEA
     Dosage: 80 MCG-4.5 MCG/INJ
     Route: 065
     Dates: start: 2017
  17. SYMBICORT [Concomitant]
     Active Substance: BUDESONIDE\FORMOTEROL FUMARATE DIHYDRATE
     Indication: CHRONIC OBSTRUCTIVE PULMONARY DISEASE
  18. CYMBALTA [Concomitant]
     Active Substance: DULOXETINE HYDROCHLORIDE
     Indication: NEURALGIA
     Dosage: 60 MG, QD
     Route: 048
     Dates: start: 20191024
  19. COMPAZINE [Concomitant]
     Active Substance: PROCHLORPERAZINE MALEATE
     Indication: NAUSEA
     Dosage: 10 MG, PRN
     Route: 048
     Dates: start: 2017
  20. ZOLOFT [Concomitant]
     Active Substance: SERTRALINE HYDROCHLORIDE
     Indication: DEPRESSION
     Dosage: 100 MG, QD
     Route: 048
     Dates: start: 2010
  21. SENOKOT [Concomitant]
     Active Substance: SENNOSIDES
     Indication: CONSTIPATION
     Dosage: 8.6 UG, PRN
     Route: 048
     Dates: start: 20190513
  22. LOMOTIL [Concomitant]
     Active Substance: ATROPINE SULFATE\DIPHENOXYLATE HYDROCHLORIDE
     Indication: IRRITABLE BOWEL SYNDROME
     Dosage: 1-2 TABS, BID
     Route: 048
     Dates: start: 20190626
  23. XARELTO [Concomitant]
     Active Substance: RIVAROXABAN
     Indication: PRODUCT USED FOR UNKNOWN INDICATION
     Dosage: 20 MG, QD
     Route: 048
     Dates: start: 2017
  24. REMERON [Concomitant]
     Active Substance: MIRTAZAPINE
     Indication: AFFECTIVE DISORDER
  25. FLUCONAZOLE. [Concomitant]
     Active Substance: FLUCONAZOLE
     Indication: OESOPHAGITIS
     Dosage: 100 MG, QD X 13 DAYS
     Route: 048
     Dates: start: 20191212

REACTIONS (4)
  - Decreased appetite [Recovered/Resolved]
  - Dysphagia [Recovered/Resolved]
  - Nausea [Recovered/Resolved]
  - Oesophageal infection [Recovered/Resolved]

NARRATIVE: CASE EVENT DATE: 20191125
